FAERS Safety Report 7681062-5 (Version None)
Quarter: 2011Q3

REPORT INFORMATION
  Report Type: 
  Country: None (occurrence: None)
  Receive Date: 20110812
  Receipt Date: 20110802
  Transmission Date: 20111222
  Serious: Yes (Other)
  Sender: FDA-Public Use
  Company Number: FR-SANOFI-AVENTIS-2011SA049787

PATIENT
  Age: 65 Year
  Sex: Male

DRUGS (6)
  1. ISOPTIN [Suspect]
     Route: 048
     Dates: start: 20100301
  2. LYRICA [Suspect]
     Route: 048
  3. MULTAQ [Suspect]
     Route: 048
  4. BACTRIM [Suspect]
     Route: 048
  5. VALACICLOVIR [Suspect]
     Route: 048
  6. TINZAPARIN SODIUM [Suspect]
     Route: 058

REACTIONS (1)
  - CHOLESTASIS [None]
